FAERS Safety Report 5735798-3 (Version None)
Quarter: 2008Q2

REPORT INFORMATION
  Report Type: 
  Country: None (occurrence: None)
  Receive Date: 20080508
  Receipt Date: 20080508
  Transmission Date: 20081010
  Serious: Yes (Other)
  Sender: FDA-Public Use
  Company Number: None

PATIENT
  Age: 46 Year
  Sex: Female
  Weight: 81.6475 kg

DRUGS (1)
  1. CREST PRO HEALTH MOUTHWASH [Suspect]
     Indication: DENTAL DISORDER PROPHYLAXIS
     Dosage: RECOMMENDED AMOUNT 2 TIMES DAILY PO
     Route: 048
     Dates: start: 20060601, end: 20061101

REACTIONS (2)
  - GINGIVAL DISCOLOURATION [None]
  - LICHEN PLANUS [None]
